FAERS Safety Report 10146545 (Version 1)
Quarter: 2014Q2

REPORT INFORMATION
  Report Type: Spontaneous
  Country: IT (occurrence: IT)
  Receive Date: 20140501
  Receipt Date: 20140501
  Transmission Date: 20141212
  Serious: Yes (Hospitalization)
  Sender: FDA-Public Use
  Company Number: IT-WATSON-2014-08574

PATIENT
  Age: 48 Year
  Sex: Female

DRUGS (2)
  1. OMEPRAZOLE (UNKNOWN) [Suspect]
     Indication: SURGERY
     Dosage: 20 MG, DAILY
     Route: 048
     Dates: start: 20131207, end: 20131227
  2. TARGIN [Suspect]
     Indication: SURGERY
     Dosage: 2.5 MG, DAILY
     Route: 048
     Dates: start: 20131207, end: 20131227

REACTIONS (1)
  - Urticaria [Recovering/Resolving]
